FAERS Safety Report 4977074-2 (Version None)
Quarter: 2006Q2

REPORT INFORMATION
  Report Type: 
  Country: None (occurrence: None)
  Receive Date: 20060419
  Receipt Date: 20060213
  Transmission Date: 20061013
  Serious: Yes (Life-Threatening, Hospitalization)
  Sender: FDA-Public Use
  Company Number: US-AMGEN-US169430

PATIENT
  Sex: Female
  Weight: 53 kg

DRUGS (11)
  1. SENSIPAR [Suspect]
     Indication: HYPERPARATHYROIDISM SECONDARY
     Dates: start: 20050601, end: 20060111
  2. TOFRANIL [Suspect]
  3. EPINEPHRINE HYDROCHLORIDE [Concomitant]
     Dates: start: 19990120
  4. ASPIRIN [Concomitant]
     Route: 048
     Dates: start: 20040414
  5. PLAVIX [Concomitant]
     Route: 048
     Dates: start: 20040414
  6. VALIUM [Concomitant]
     Route: 048
     Dates: start: 20040414
  7. SEROQUEL [Concomitant]
  8. LIPITOR [Concomitant]
     Route: 048
     Dates: start: 20050401
  9. PHOSLO [Concomitant]
     Dates: start: 20050309
  10. NORVASC [Concomitant]
     Dates: start: 20051117
  11. LORTAB [Concomitant]
     Dates: start: 20030101

REACTIONS (2)
  - CEREBROVASCULAR ACCIDENT [None]
  - CONVULSION [None]
